FAERS Safety Report 9731743 (Version 2)
Quarter: 2014Q1

REPORT INFORMATION
  Report Type: Report from Study
  Country: JP (occurrence: JP)
  Receive Date: 20131204
  Receipt Date: 20140211
  Transmission Date: 20141002
  Serious: Yes (Hospitalization)
  Sender: FDA-Public Use
  Company Number: JP-AMGEN-JPNCT2013085091

PATIENT
  Age: 74 Year
  Sex: Female
  Weight: 43 kg

DRUGS (21)
  1. DARBEPOETIN ALFA [Suspect]
     Indication: NEPHROGENIC ANAEMIA
     Dosage: 180 MUG, QD
     Route: 058
     Dates: start: 20110728
  2. NIFEDIPINE [Concomitant]
     Dosage: UNK
     Route: 048
  3. KREMEZIN [Concomitant]
     Indication: NEPHROSCLEROSIS
     Dosage: UNK
     Route: 048
  4. ALLOPURINOL [Concomitant]
     Dosage: UNK
     Route: 048
  5. FASTIC [Concomitant]
     Dosage: UNK
     Route: 048
  6. BEZAFIBRATE [Concomitant]
     Dosage: UNK
     Route: 048
  7. BROTIZOLAM [Concomitant]
     Dosage: UNK
     Route: 048
  8. PURSENNID                          /00142207/ [Concomitant]
     Dosage: UNK
     Route: 048
  9. NATEGLINIDE [Concomitant]
     Dosage: UNK
     Route: 048
  10. LACTULOSE [Concomitant]
     Dosage: UNK
     Route: 048
  11. ISOLEUCINE W/LEUCINE/VALINE [Concomitant]
     Dosage: UNK
     Route: 048
  12. ASPIRIN [Concomitant]
     Dosage: UNK
     Route: 048
  13. SODIUM BICARBONATE [Concomitant]
     Dosage: UNK
     Route: 048
  14. NEXIUM                             /01479302/ [Concomitant]
     Dosage: UNK
     Route: 048
  15. LIVALO [Concomitant]
     Dosage: UNK
     Route: 048
  16. FEBURIC [Concomitant]
     Dosage: UNK
     Route: 048
  17. FUROSEMIDE [Concomitant]
     Dosage: UNK
     Route: 048
  18. SPIRONOLACTONE [Concomitant]
     Dosage: UNK
     Route: 048
  19. ARTIST [Concomitant]
     Dosage: UNK
     Route: 048
  20. ENALAPRIL [Concomitant]
     Dosage: UNK
     Route: 048
  21. EQUA [Concomitant]
     Dosage: UNK
     Route: 048

REACTIONS (4)
  - Cardiac failure congestive [Recovered/Resolved]
  - Duodenal ulcer [Recovered/Resolved]
  - Urinary tract infection [Recovered/Resolved]
  - Arteriosclerosis [Unknown]
